FAERS Safety Report 25143125 (Version 2)
Quarter: 2025Q2

REPORT INFORMATION
  Report Type: Spontaneous
  Country: JP (occurrence: JP)
  Receive Date: 20250401
  Receipt Date: 20250407
  Transmission Date: 20250717
  Serious: Yes (Other)
  Sender: GLAXOSMITHKLINE
  Company Number: JP-GSK-JP2025JPN035527

PATIENT

DRUGS (1)
  1. ALBUTEROL [Suspect]
     Active Substance: ALBUTEROL
     Indication: Asthma

REACTIONS (5)
  - Pulmonary oedema [Unknown]
  - Cardiac failure [Unknown]
  - Supraventricular tachycardia [Recovered/Resolved]
  - Asthma [Unknown]
  - Tachycardia [Unknown]
